FAERS Safety Report 25149531 (Version 2)
Quarter: 2025Q2

REPORT INFORMATION
  Report Type: Spontaneous
  Country: HU (occurrence: HU)
  Receive Date: 20250402
  Receipt Date: 20250409
  Transmission Date: 20250717
  Serious: Yes (Hospitalization)
  Sender: VELOXIS PHARMACEUTICALS
  Company Number: HU-ASTELLAS-2025-AER-015976

PATIENT
  Age: 70 Year
  Sex: Male
  Weight: 80 kg

DRUGS (6)
  1. TACROLIMUS [Suspect]
     Active Substance: TACROLIMUS
     Indication: Renal transplant
     Route: 065
     Dates: start: 2021
  2. THYMOGLOBULIN [Concomitant]
     Active Substance: LAPINE T-LYMPHOCYTE IMMUNE GLOBULIN
     Indication: Product used for unknown indication
     Route: 065
     Dates: start: 2021, end: 2021
  3. CEFAZOLIN [Concomitant]
     Active Substance: CEFAZOLIN
     Indication: Prophylaxis
     Route: 065
     Dates: start: 2021
  4. FUROSEMIDE [Concomitant]
     Active Substance: FUROSEMIDE
     Indication: Product used for unknown indication
     Route: 065
     Dates: start: 2021
  5. ENOXAPARIN SODIUM [Concomitant]
     Active Substance: ENOXAPARIN SODIUM
     Indication: Product used for unknown indication
     Route: 058
     Dates: start: 2021
  6. CEFUROXIME [Concomitant]
     Active Substance: CEFUROXIME
     Indication: Product used for unknown indication
     Route: 065
     Dates: start: 2021

REACTIONS (2)
  - SARS-CoV-2 test positive [Unknown]
  - Pyrexia [Unknown]

NARRATIVE: CASE EVENT DATE: 20211101
